FAERS Safety Report 17048453 (Version 1)
Quarter: 2019Q4

REPORT INFORMATION
  Report Type: Spontaneous
  Country: US (occurrence: US)
  Receive Date: 20191019
  Receipt Date: 20191019
  Transmission Date: 20200122
  Serious: Yes (Hospitalization)
  Sender: FDA-Public Use
  Company Number: None

PATIENT
  Age: 67 Year
  Sex: Male
  Weight: 104.8 kg

DRUGS (2)
  1. MITOMYCIN C [Suspect]
     Active Substance: MITOMYCIN
     Dates: end: 20190904
  2. 5-FLUOROURACIL (5-FU) [Suspect]
     Active Substance: FLUOROURACIL
     Dates: end: 20190907

REACTIONS (5)
  - Pancytopenia [None]
  - Anal incontinence [None]
  - Febrile neutropenia [None]
  - Fatigue [None]
  - Diarrhoea [None]

NARRATIVE: CASE EVENT DATE: 20190918
